FAERS Safety Report 4919217-2 (Version None)
Quarter: 2006Q1

REPORT INFORMATION
  Report Type: 
  Country: None (occurrence: None)
  Receive Date: 20060113
  Receipt Date: 20051205
  Transmission Date: 20060701
  Serious: No
  Sender: FDA-Public Use
  Company Number: 2005SP004271

PATIENT
  Age: 66 Year
  Sex: Female
  Weight: 77.1115 kg

DRUGS (10)
  1. LUNESTA [Suspect]
     Dosage: 2 MG;ORAL
     Route: 048
     Dates: start: 20050527, end: 20050527
  2. AMBIEN [Concomitant]
  3. CELEBREX [Concomitant]
  4. AVAPRO [Concomitant]
  5. HYDROCODONE [Concomitant]
  6. ACIPHEX [Concomitant]
  7. VITAMINS [Concomitant]
  8. CLARINEX [Concomitant]
  9. WELLBUTRIN [Concomitant]
  10. VITOREN [Concomitant]

REACTIONS (1)
  - DYSGEUSIA [None]
